FAERS Safety Report 9104484 (Version 2)
Quarter: 2013Q2

REPORT INFORMATION
  Report Type: Spontaneous
  Country: CA (occurrence: CA)
  Receive Date: 20130220
  Receipt Date: 20130416
  Transmission Date: 20140414
  Serious: Yes (Other)
  Sender: FDA-Public Use
  Company Number: CA-BAYER-2013-021606

PATIENT
  Age: 28 Year
  Sex: Female
  Weight: 73 kg

DRUGS (3)
  1. CIPRO XL [Suspect]
     Indication: URINARY TRACT INFECTION
     Dosage: 500 MG, BID
     Route: 048
     Dates: start: 20120726, end: 20120801
  2. PASSIFLORA EXTRACT [Concomitant]
     Dosage: UNK (TAKEN FOR PAST TWO MONTHS)
  3. ST JOHNS WORT [Concomitant]
     Dosage: UNK (TAKEN FOR PAST TWO MONTHS)

REACTIONS (4)
  - Muscle spasms [None]
  - Myalgia [None]
  - Tendon injury [None]
  - Tendonitis [None]
